FAERS Safety Report 18863640 (Version 1)
Quarter: 2021Q1

REPORT INFORMATION
  Report Type: Spontaneous
  Country: US (occurrence: US)
  Receive Date: 20210209
  Receipt Date: 20210209
  Transmission Date: 20210420
  Serious: Yes (Other)
  Sender: FDA-Public Use
  Company Number: US-SA-2021SA034764

PATIENT
  Age: 59 Year
  Sex: Male

DRUGS (2)
  1. ZANTAC [Suspect]
     Active Substance: RANITIDINE HYDROCHLORIDE
     Indication: GASTROOESOPHAGEAL REFLUX DISEASE
     Dosage: UNK, QD
     Dates: start: 200904, end: 201906
  2. ZANTAC [Suspect]
     Active Substance: RANITIDINE HYDROCHLORIDE
     Indication: DYSPEPSIA

REACTIONS (7)
  - Gastrointestinal carcinoma [Not Recovered/Not Resolved]
  - Hepatic cancer stage IV [Not Recovered/Not Resolved]
  - Gastric cancer stage IV [Not Recovered/Not Resolved]
  - Small intestine carcinoma stage IV [Not Recovered/Not Resolved]
  - Colorectal cancer stage IV [Not Recovered/Not Resolved]
  - Oesophageal carcinoma [Not Recovered/Not Resolved]
  - Renal cancer stage IV [Not Recovered/Not Resolved]

NARRATIVE: CASE EVENT DATE: 20190601
